FAERS Safety Report 8796373 (Version 1)
Quarter: 2012Q4

REPORT INFORMATION
  Report Type: 
  Country: US (occurrence: US)
  Receive Date: 20120919
  Receipt Date: 20120919
  Transmission Date: 20130627
  Serious: Yes (Other)
  Sender: FDA-Public Use
  Company Number: US-BAYER-2012-096964

PATIENT
  Sex: Female
  Weight: 74.38 kg

DRUGS (10)
  1. BETASERON [Suspect]
     Dosage: 0.25 mg, QOD
     Route: 058
  2. CRESTOR [Concomitant]
     Dosage: 10 mg, UNK
  3. SYNTHROID [Concomitant]
     Dosage: 50 ?g, UNK
  4. ZOLOFT [Concomitant]
     Dosage: 25 mg, UNK
  5. ENABLEX [Concomitant]
     Dosage: 7.5 mg, UNK
  6. NEXIUM [Concomitant]
     Dosage: 20 mg, UNK
  7. LISINOPRIL [Concomitant]
     Dosage: 2.5 mg, UNK
  8. PROVIGIL [Concomitant]
     Dosage: 100 mg, UNK
  9. VITAMIN C [Concomitant]
  10. VITAMIN D [Concomitant]
     Dosage: 1000 iu, UNK

REACTIONS (3)
  - Cystitis [Unknown]
  - Vision blurred [None]
  - Headache [Unknown]
